FAERS Safety Report 8933375 (Version 1)
Quarter: 2012Q4

REPORT INFORMATION
  Report Type: 
  Country: AT (occurrence: AT)
  Receive Date: 20121128
  Receipt Date: 20121128
  Transmission Date: 20130627
  Serious: Yes (Hospitalization)
  Sender: FDA-Public Use
  Company Number: AT-AMGEN-AUTSP2012075926

PATIENT
  Age: 84 Year
  Sex: Male

DRUGS (2)
  1. XGEVA [Suspect]
     Indication: METASTASES TO BONE
     Dosage: UNK UNK, qmo
     Dates: start: 201209
  2. XGEVA [Suspect]
     Indication: PROSTATE CANCER

REACTIONS (4)
  - Atrial fibrillation [Unknown]
  - Dysphagia [Unknown]
  - Hypotension [Unknown]
  - Hypocalcaemia [Unknown]
